FAERS Safety Report 7814911-8 (Version None)
Quarter: 2011Q4

REPORT INFORMATION
  Report Type: 
  Country: None (occurrence: None)
  Receive Date: 20111014
  Receipt Date: 20111011
  Transmission Date: 20120403
  Serious: Yes (Other)
  Sender: FDA-Public Use
  Company Number: US-PFIZER INC-2011243188

PATIENT
  Sex: Female
  Weight: 65.76 kg

DRUGS (1)
  1. ROBITUSSIN PEAK COLD MAXIMUM STRENGTH MULTI-SYMPTOM COLD [Suspect]
     Dosage: UNK, 1X/DAY
     Route: 048
     Dates: start: 20111010, end: 20111011

REACTIONS (14)
  - LACRIMATION INCREASED [None]
  - DRUG INTOLERANCE [None]
  - NASOPHARYNGITIS [None]
  - HYPOAESTHESIA [None]
  - HYPOACUSIS [None]
  - HEADACHE [None]
  - DISCOMFORT [None]
  - EAR PRURITUS [None]
  - PRURITUS [None]
  - SNEEZING [None]
  - INSOMNIA [None]
  - RHINORRHOEA [None]
  - FEAR [None]
  - DEPRESSED MOOD [None]
